FAERS Safety Report 14977786 (Version 1)
Quarter: 2018Q2

REPORT INFORMATION
  Report Type: Spontaneous
  Country: US (occurrence: US)
  Receive Date: 20180515
  Receipt Date: 20180515
  Transmission Date: 20180711
  Serious: Yes (Hospitalization)
  Sender: FDA-Public Use
  Company Number: None

PATIENT
  Sex: Female

DRUGS (7)
  1. RAMIPRIL 1.25MG [Concomitant]
     Active Substance: RAMIPRIL
  2. CAPECITABINE. [Suspect]
     Active Substance: CAPECITABINE
     Indication: BREAST CANCER
     Dosage: ?          OTHER FREQUENCY:BID 14 ON/7 OFF;?
     Route: 048
     Dates: start: 20180119
  3. METFORMIN 500MG [Concomitant]
     Active Substance: METFORMIN HYDROCHLORIDE
  4. TAMOXIFEN 20MG [Concomitant]
     Active Substance: TAMOXIFEN
  5. VITAMIN C 500MG [Concomitant]
  6. CAPECITABINE. [Suspect]
     Active Substance: CAPECITABINE
     Indication: BREAST CANCER
     Dosage: OTHER FREQUENCY:BID 14 ON/7 OFF;?
     Route: 048
     Dates: start: 20180119
  7. ATORVASTATIN 80MG [Concomitant]
     Active Substance: ATORVASTATIN

REACTIONS (2)
  - Mucosal inflammation [None]
  - Therapy change [None]
